FAERS Safety Report 26194674 (Version 1)
Quarter: 2025Q4

REPORT INFORMATION
  Report Type: Spontaneous
  Country: US (occurrence: US)
  Receive Date: 20251224
  Receipt Date: 20251224
  Transmission Date: 20260117
  Serious: No
  Sender: Kenvue
  Company Number: US-KENVUE-20251203586

PATIENT
  Sex: Female

DRUGS (2)
  1. MENS ROGAINE EXTRA STRENGTH [Suspect]
     Active Substance: MINOXIDIL
     Indication: Product used for unknown indication
     Dosage: UNK
     Route: 065
  2. ROGAINE FOR WOMEN REGULAR STRENGTH UNSPECIFIED [Concomitant]
     Indication: Product used for unknown indication
     Dosage: USING ON FRONT OF HEAD
     Route: 048

REACTIONS (1)
  - Intercepted medication error [Unknown]
